FAERS Safety Report 9291255 (Version 1)
Quarter: 2013Q2

REPORT INFORMATION
  Report Type: Report from Study
  Country: US (occurrence: US)
  Receive Date: 20130515
  Receipt Date: 20130515
  Transmission Date: 20140414
  Serious: Yes (Hospitalization)
  Sender: FDA-Public Use
  Company Number: US-ACTELION-A-US2013-83019

PATIENT
  Age: 71 Year
  Sex: Female

DRUGS (10)
  1. TRACLEER [Suspect]
     Indication: PULMONARY ARTERIAL HYPERTENSION
     Dosage: 62.5 MG, BID
     Route: 048
     Dates: start: 2012, end: 2012
  2. TRACLEER [Suspect]
     Dosage: 125 MG, BID
     Route: 048
     Dates: start: 2012
  3. PLAVIX [Concomitant]
  4. EVISTA [Concomitant]
  5. VALSARTAN [Concomitant]
  6. WARFARIN SODIUM [Concomitant]
  7. FERROUS SULFATE [Concomitant]
  8. AMLODIPINE BESYLATE [Concomitant]
  9. VYTORIN [Concomitant]
  10. POTASSIUM CHLORIDE [Concomitant]

REACTIONS (2)
  - Breast swelling [Recovered/Resolved]
  - Lymphadenopathy [Recovered/Resolved]
